FAERS Safety Report 9695497 (Version 1)
Quarter: 2013Q4

REPORT INFORMATION
  Report Type: Spontaneous
  Country: KR (occurrence: KR)
  Receive Date: 20131119
  Receipt Date: 20131119
  Transmission Date: 20140711
  Serious: Yes (Other)
  Sender: FDA-Public Use
  Company Number: KR-PFIZER INC-2013324969

PATIENT
  Age: 45 Year
  Sex: Male

DRUGS (3)
  1. OXALIPLATIN [Suspect]
     Indication: ADENOCARCINOMA OF COLON
     Dosage: UNK, 12 CYCLES
  2. LEUCOVORIN [Concomitant]
     Indication: ADENOCARCINOMA OF COLON
     Dosage: UNK,12 CYCLES
  3. 5-FU [Concomitant]
     Indication: ADENOCARCINOMA OF COLON
     Dosage: UNK,12 CYCLES

REACTIONS (3)
  - Hepatic fibrosis [Unknown]
  - Splenomegaly [Unknown]
  - Portal hypertension [Unknown]
